FAERS Safety Report 10256799 (Version 1)
Quarter: 2014Q2

REPORT INFORMATION
  Report Type: Spontaneous
  Country: US (occurrence: US)
  Receive Date: 20140624
  Receipt Date: 20140624
  Transmission Date: 20141212
  Serious: Yes (Life-Threatening)
  Sender: FDA-Public Use
  Company Number: US-MYLANLABS-2014S1014415

PATIENT
  Sex: Male

DRUGS (1)
  1. EPIPEN [Suspect]
     Indication: ALLERGY TO ARTHROPOD STING
     Route: 030

REACTIONS (5)
  - Injury associated with device [Recovered/Resolved]
  - Device malfunction [Recovered/Resolved]
  - Dyspnoea [Recovered/Resolved]
  - Swollen tongue [Recovered/Resolved]
  - Pharyngeal oedema [Recovered/Resolved]
